FAERS Safety Report 6133681-5 (Version None)
Quarter: 2009Q1

REPORT INFORMATION
  Report Type: 
  Country: None (occurrence: None)
  Receive Date: 20090326
  Receipt Date: 20090319
  Transmission Date: 20090719
  Serious: Yes (Hospitalization, Other)
  Sender: FDA-Public Use
  Company Number: B0561720A

PATIENT
  Age: 7 Year
  Sex: Male
  Weight: 26.4 kg

DRUGS (1)
  1. RELENZA [Suspect]
     Indication: INFLUENZA
     Dosage: 5MG PER DAY
     Route: 055
     Dates: start: 20090208, end: 20090208

REACTIONS (6)
  - ABNORMAL BEHAVIOUR [None]
  - CONVULSION [None]
  - DELIRIUM [None]
  - DYSKINESIA [None]
  - EPILEPSY [None]
  - INCOHERENT [None]
